FAERS Safety Report 17921864 (Version 1)
Quarter: 2020Q2

REPORT INFORMATION
  Report Type: Spontaneous
  Country: JP (occurrence: JP)
  Receive Date: 20200622
  Receipt Date: 20200622
  Transmission Date: 20200714
  Serious: Yes (Hospitalization)
  Sender: FDA-Public Use
  Company Number: JP-TEVA-2020-JP-004120J

PATIENT
  Age: 65 Year
  Sex: Female
  Weight: 56 kg

DRUGS (11)
  1. GEMCITABINE. [Concomitant]
     Active Substance: GEMCITABINE
     Route: 065
     Dates: start: 20200108, end: 20200115
  2. LANSOPRAZOLE OD TABLET 15MG TEVA [Suspect]
     Active Substance: LANSOPRAZOLE
     Indication: PRODUCT USED FOR UNKNOWN INDICATION
     Dosage: 15 MILLIGRAM DAILY;
     Route: 048
     Dates: start: 20191225, end: 20200115
  3. TOARASET [Suspect]
     Active Substance: ACETAMINOPHEN\TRAMADOL HYDROCHLORIDE
     Indication: CANCER PAIN
     Dosage: 3 DOSAGE FORMS DAILY;
     Route: 048
     Dates: start: 20200108, end: 20200115
  4. REBAMIPIDE [Concomitant]
     Active Substance: REBAMIPIDE
     Route: 065
     Dates: start: 20200121, end: 20200128
  5. CISPLATIN. [Concomitant]
     Active Substance: CISPLATIN
     Route: 065
     Dates: start: 20200108, end: 20200115
  6. TRAMAL OD [Suspect]
     Active Substance: TRAMADOL
     Route: 048
     Dates: start: 20191225, end: 20200107
  7. CAMSHIA [Concomitant]
     Active Substance: AMLODIPINE BESYLATE\CANDESARTAN CILEXETIL
     Route: 065
     Dates: end: 20200120
  8. CANDESARTAN CILEXETIL. [Concomitant]
     Active Substance: CANDESARTAN CILEXETIL
     Route: 065
     Dates: start: 20200121
  9. AMLODIPINE [Concomitant]
     Active Substance: AMLODIPINE BESYLATE
     Route: 065
     Dates: start: 20200121
  10. TRAMAL OD [Suspect]
     Active Substance: TRAMADOL
     Indication: CANCER PAIN
     Dosage: 75 MILLIGRAM DAILY;
     Route: 048
     Dates: start: 20191225, end: 20200107
  11. LOXOPROFEN SODIUM HYDRATE [Concomitant]
     Active Substance: LOXOPROFEN SODIUM DIHYDRATE
     Route: 065
     Dates: start: 20200121, end: 20200128

REACTIONS (2)
  - Platelet count decreased [Recovered/Resolved]
  - Immune thrombocytopenia [Recovered/Resolved]

NARRATIVE: CASE EVENT DATE: 20200115
